FAERS Safety Report 15888489 (Version 2)
Quarter: 2019Q1

REPORT INFORMATION
  Report Type: Spontaneous
  Country: JP (occurrence: JP)
  Receive Date: 20190130
  Receipt Date: 20190315
  Transmission Date: 20190417
  Serious: Yes (Hospitalization)
  Sender: FDA-Public Use
  Company Number: JP-ROCHE-2255481

PATIENT
  Age: 24 Year
  Sex: Male

DRUGS (3)
  1. L-CARBOCISTEINE [Concomitant]
     Active Substance: CARBOCYSTEINE
     Route: 065
     Dates: start: 20190115, end: 20190116
  2. XOFLUZA [Suspect]
     Active Substance: BALOXAVIR MARBOXIL
     Indication: INFLUENZA
     Route: 048
     Dates: start: 20190115, end: 20190115
  3. TELGIN-G [Concomitant]
     Route: 065
     Dates: start: 20190115, end: 20190116

REACTIONS (1)
  - Colitis ischaemic [Recovering/Resolving]

NARRATIVE: CASE EVENT DATE: 20190115
